FAERS Safety Report 9820373 (Version 1)
Quarter: 2013Q4

REPORT INFORMATION
  Report Type: Spontaneous
  Country: US (occurrence: None)
  Receive Date: 20131028
  Receipt Date: 20131028
  Transmission Date: 20140711
  Serious: Yes (Other)
  Sender: FDA-Public Use
  Company Number: 2013US001481

PATIENT
  Age: 47 Year
  Sex: Female

DRUGS (3)
  1. ICLUSIG [Suspect]
     Indication: CHRONIC MYELOID LEUKAEMIA
     Route: 048
     Dates: start: 20130326
  2. AMITRIPTYLINE (AMITRIPTYLINE) [Concomitant]
  3. ZOFRAN (ONDANSETRON) [Concomitant]

REACTIONS (5)
  - Weight decreased [None]
  - Vaginal haemorrhage [None]
  - Decreased appetite [None]
  - Asthenia [None]
  - Nausea [None]
